FAERS Safety Report 7076705-3 (Version None)
Quarter: 2010Q4

REPORT INFORMATION
  Report Type: 
  Country: None (occurrence: None)
  Receive Date: 20101101
  Receipt Date: 20101018
  Transmission Date: 20110411
  Serious: Yes (Other)
  Sender: FDA-Public Use
  Company Number: US-ELI_LILLY_AND_COMPANY-US201010004910

PATIENT
  Sex: Female

DRUGS (10)
  1. FORTEO [Suspect]
     Indication: OSTEOPOROSIS
     Dosage: 20 UG, DAILY (1/D)
  2. PLETAL [Concomitant]
  3. NABUMETONE [Concomitant]
  4. FISH OIL [Concomitant]
  5. CALCIUM [Concomitant]
  6. ASPIRIN [Concomitant]
  7. LORTAB [Concomitant]
     Dosage: 7.5 MG, UNK
  8. METHADONE [Concomitant]
  9. SPIRIVA [Concomitant]
  10. ADVAIR DISKUS 100/50 [Concomitant]

REACTIONS (8)
  - ANAEMIA [None]
  - ASTHENIA [None]
  - BONE PAIN [None]
  - HAEMORRHAGE [None]
  - MUSCULAR WEAKNESS [None]
  - OESOPHAGEAL ULCER HAEMORRHAGE [None]
  - PAIN [None]
  - PNEUMONIA [None]
